FAERS Safety Report 8479934-7 (Version None)
Quarter: 2012Q2

REPORT INFORMATION
  Report Type: 
  Country: None (occurrence: None)
  Receive Date: 20120629
  Receipt Date: 20120620
  Transmission Date: 20120825
  Serious: Yes (Other)
  Sender: FDA-Public Use
  Company Number: US-ASTRAZENECA-2012SE06204

PATIENT
  Age: 44 Year
  Sex: Female
  Weight: 47.1 kg

DRUGS (9)
  1. VICODIN [Concomitant]
     Indication: ARTHRITIS
     Dosage: 5/325 MG, QID
  2. SEROQUEL [Suspect]
     Indication: BIPOLAR DISORDER
     Route: 048
  3. XANAX [Concomitant]
     Indication: PANIC DISORDER
  4. VICODIN [Concomitant]
     Indication: HEADACHE
     Dosage: 5/325 MG, QID
  5. TRAMADOL HCL [Concomitant]
     Indication: PAIN
  6. XANAX [Concomitant]
     Indication: ANXIETY
  7. VICODIN [Concomitant]
     Indication: MUSCLE SPASMS
     Dosage: 5/325 MG, QID
  8. SEROQUEL [Suspect]
     Route: 048
  9. TRAZODONE HCL [Suspect]
     Route: 065

REACTIONS (16)
  - SUICIDAL IDEATION [None]
  - MEMORY IMPAIRMENT [None]
  - SCHIZOPHRENIA [None]
  - WEIGHT INCREASED [None]
  - DYSKINESIA [None]
  - BIPOLAR DISORDER [None]
  - PARAESTHESIA [None]
  - MUSCLE SPASMS [None]
  - IMPAIRED SELF-CARE [None]
  - NEUROLOGICAL SYMPTOM [None]
  - DEPRESSION [None]
  - SOCIAL FEAR [None]
  - THERAPEUTIC RESPONSE DECREASED [None]
  - PARANOIA [None]
  - THERAPEUTIC RESPONSE UNEXPECTED [None]
  - DRUG DOSE OMISSION [None]
